FAERS Safety Report 6629660-1 (Version None)
Quarter: 2010Q1

REPORT INFORMATION
  Report Type: 
  Country: None (occurrence: None)
  Receive Date: 20100311
  Receipt Date: 20100226
  Transmission Date: 20100710
  Serious: Yes (Death, Hospitalization)
  Sender: FDA-Public Use
  Company Number: US-GENZYME-POMP-1000868

PATIENT
  Sex: Female

DRUGS (7)
  1. MYOZYME [Suspect]
     Indication: GLYCOGEN STORAGE DISEASE TYPE II
     Dosage: 20 MG/KG, Q2W
     Route: 042
     Dates: start: 20090428, end: 20100202
  2. ASPIRIN [Concomitant]
     Indication: DRUG USE FOR UNKNOWN INDICATION
     Dosage: 40 MG, QD
     Route: 065
     Dates: start: 20090401, end: 20100218
  3. LASIX [Concomitant]
     Indication: DRUG USE FOR UNKNOWN INDICATION
     Dosage: 20 MG, UNK
     Route: 065
     Dates: start: 20090401, end: 20100218
  4. XOPENEX [Concomitant]
     Indication: DRUG USE FOR UNKNOWN INDICATION
     Dosage: 0.64 MG, UNK
     Route: 065
     Dates: start: 20090401, end: 20100218
  5. PULMICORT [Concomitant]
     Indication: DRUG USE FOR UNKNOWN INDICATION
     Dosage: 0.5 MG, Q12HR
     Route: 065
     Dates: start: 20090401, end: 20100218
  6. CAPTOPRIL [Concomitant]
     Indication: DRUG USE FOR UNKNOWN INDICATION
     Dosage: 2 MG, TID
     Route: 065
     Dates: start: 20090401, end: 20100218
  7. PRILOSEC [Concomitant]
     Indication: DRUG USE FOR UNKNOWN INDICATION
     Dosage: 3 MG, BID
     Route: 065
     Dates: start: 20090401, end: 20100218

REACTIONS (4)
  - DYSPNOEA [None]
  - RESPIRATORY DISTRESS [None]
  - RESPIRATORY FAILURE [None]
  - SEPSIS [None]
